FAERS Safety Report 19054020 (Version 1)
Quarter: 2021Q1

REPORT INFORMATION
  Report Type: Report from Study
  Country: None (occurrence: US)
  Receive Date: 20210324
  Receipt Date: 20210324
  Transmission Date: 20210420
  Serious: Yes (Other)
  Sender: FDA-Public Use
  Company Number: US-ABBVIE-21K-163-3820398-00

PATIENT
  Sex: Male

DRUGS (2)
  1. HUMIRA [Suspect]
     Active Substance: ADALIMUMAB
     Indication: PSORIATIC ARTHROPATHY
  2. HUMIRA [Suspect]
     Active Substance: ADALIMUMAB
     Indication: PSORIASIS
     Dosage: CF
     Route: 058

REACTIONS (8)
  - Loss of consciousness [Recovered/Resolved]
  - Mydriasis [Recovered/Resolved]
  - Hyperhidrosis [Recovering/Resolving]
  - Hyperventilation [Recovered/Resolved]
  - Pallor [Recovering/Resolving]
  - Decerebrate posture [Recovered/Resolved]
  - Fatigue [Unknown]
  - Nausea [Recovering/Resolving]
